FAERS Safety Report 20050030 (Version 1)
Quarter: 2021Q4

REPORT INFORMATION
  Report Type: Spontaneous
  Country: US (occurrence: None)
  Receive Date: 20211109
  Receipt Date: 20211109
  Transmission Date: 20220303
  Serious: Yes (Hospitalization)
  Sender: FDA-Public Use
  Company Number: None

PATIENT
  Sex: Female
  Weight: 58.7 kg

DRUGS (3)
  1. ACALABRUTINIB [Suspect]
     Active Substance: ACALABRUTINIB
     Dates: end: 20211026
  2. BENDAMUSTINE HYDROCHLORIDE [Suspect]
     Active Substance: BENDAMUSTINE HYDROCHLORIDE
     Dates: end: 20211027
  3. RITUXIMAB [Suspect]
     Active Substance: RITUXIMAB
     Dates: end: 20211026

REACTIONS (3)
  - Liver function test increased [None]
  - Pyrexia [None]
  - Rash [None]

NARRATIVE: CASE EVENT DATE: 20211106
